FAERS Safety Report 25811068 (Version 1)
Quarter: 2025Q3

REPORT INFORMATION
  Report Type: Spontaneous
  Country: EU (occurrence: EU)
  Receive Date: 20250917
  Receipt Date: 20250917
  Transmission Date: 20251021
  Serious: Yes (Hospitalization)
  Sender: TEVA
  Company Number: None

PATIENT
  Age: 30 Year
  Sex: Male
  Weight: 83 kg

DRUGS (8)
  1. CLOZAPINE [Suspect]
     Active Substance: CLOZAPINE
     Indication: Wrong patient
     Route: 048
     Dates: start: 20250808, end: 20250808
  2. TRIHEXYPHENIDYL [Suspect]
     Active Substance: TRIHEXYPHENIDYL
     Indication: Behaviour disorder
     Dosage: 1 AT NOON
     Route: 048
  3. PRAZEPAM [Suspect]
     Active Substance: PRAZEPAM
     Indication: Wrong patient
     Route: 048
     Dates: start: 20250808, end: 20250808
  4. PERICIAZINE [Suspect]
     Active Substance: PERICIAZINE
     Indication: Behaviour disorder
     Dosage: 1 AT NOON
     Route: 048
  5. TRANXENE [Suspect]
     Active Substance: CLORAZEPATE DIPOTASSIUM
     Indication: Behaviour disorder
     Route: 048
  6. PIPAMPERONE [Suspect]
     Active Substance: PIPAMPERONE
     Indication: Behaviour disorder
     Route: 048
  7. VALPROATE SODIUM [Suspect]
     Active Substance: VALPROATE SODIUM
     Indication: Behaviour disorder
     Route: 048
  8. LOXAPINE SUCCINATE [Suspect]
     Active Substance: LOXAPINE SUCCINATE
     Indication: Wrong patient
     Route: 048
     Dates: start: 20250808, end: 20250808

REACTIONS (3)
  - Coma [Recovered/Resolved]
  - Wrong patient [Recovered/Resolved]
  - Drug interaction [Recovered/Resolved]

NARRATIVE: CASE EVENT DATE: 20250808
